FAERS Safety Report 8525990 (Version 4)
Quarter: 2015Q2

REPORT INFORMATION
  Report Type: Report from Study
  Country: CA (occurrence: CA)
  Receive Date: 20120423
  Receipt Date: 20150625
  Transmission Date: 20150821
  Serious: Yes (Other)
  Sender: FDA-Public Use
  Company Number: CA-ROCHE-1061547

PATIENT
  Age: 65 Year
  Sex: Female
  Weight: 81.72 kg

DRUGS (9)
  1. MOBICOX [Concomitant]
     Active Substance: MELOXICAM
  2. ACETAMINOPHEN. [Concomitant]
     Active Substance: ACETAMINOPHEN
     Route: 048
     Dates: start: 20130710
  3. METHYLPREDNISOLONE. [Concomitant]
     Active Substance: METHYLPREDNISOLONE
     Indication: PREMEDICATION
     Route: 042
     Dates: start: 20091126
  4. TYLENOL WITH CODEINE [Suspect]
     Active Substance: ACETAMINOPHEN\CODEINE PHOSPHATE
     Indication: PRODUCT USED FOR UNKNOWN INDICATION
     Dosage: DRUG REPORTED AS : TYLENOL 3
     Route: 065
  5. DIPHENHYDRAMINE HCL [Concomitant]
     Active Substance: DIPHENHYDRAMINE HYDROCHLORIDE
     Indication: PREMEDICATION
     Route: 048
     Dates: start: 20091126
  6. RITUXAN [Suspect]
     Active Substance: RITUXIMAB
     Route: 042
     Dates: start: 20141118
  7. RITUXAN [Suspect]
     Active Substance: RITUXIMAB
     Indication: RHEUMATOID ARTHRITIS
     Dosage: DAY 1 AND 15
     Route: 042
     Dates: start: 20091126
  8. ACETAMINOPHEN. [Concomitant]
     Active Substance: ACETAMINOPHEN
     Indication: PREMEDICATION
     Route: 048
     Dates: start: 20091126, end: 20120419
  9. LEUCOVORIN [Concomitant]
     Active Substance: LEUCOVORIN

REACTIONS (9)
  - Pain [Unknown]
  - Helicobacter infection [Recovered/Resolved]
  - Hepatic pain [Not Recovered/Not Resolved]
  - Hepatic enzyme increased [Unknown]
  - Headache [Recovering/Resolving]
  - Blood pressure increased [Unknown]
  - Drug hypersensitivity [Not Recovered/Not Resolved]
  - Diabetes mellitus [Unknown]
  - Pruritus [Recovered/Resolved]

NARRATIVE: CASE EVENT DATE: 2011
